FAERS Safety Report 18717546 (Version 1)
Quarter: 2021Q1

REPORT INFORMATION
  Report Type: Spontaneous
  Country: ES (occurrence: ES)
  Receive Date: 20210108
  Receipt Date: 20210108
  Transmission Date: 20210419
  Serious: Yes (Death, Hospitalization)
  Sender: FDA-Public Use
  Company Number: ES-MYLANLABS-2021M1000957

PATIENT
  Age: 9 Year
  Sex: Male

DRUGS (1)
  1. VORICONAZOLE. [Suspect]
     Active Substance: VORICONAZOLE
     Indication: ANTIFUNGAL PROPHYLAXIS
     Dosage: PROLONGED THERAPY
     Route: 065

REACTIONS (2)
  - Squamous cell carcinoma [Fatal]
  - Photosensitivity reaction [Fatal]

NARRATIVE: CASE EVENT DATE: 201703
